FAERS Safety Report 8580940-2 (Version None)
Quarter: 2012Q3

REPORT INFORMATION
  Report Type: 
  Country: None (occurrence: None)
  Receive Date: 20120727
  Receipt Date: 20120712
  Transmission Date: 20120928
  Serious: No
  Sender: FDA-Public Use
  Company Number: US-1193271

PATIENT
  Age: 51 Year
  Sex: Male

DRUGS (3)
  1. PREDNISOLONE ACETATE [Suspect]
     Indication: IRIDOCYCLITIS
     Dosage: 1 % QID QD, AT BASELINE OPHTHALMIC,; 1 % TID, AT 4 WEEKS OPHTHALMIC
     Route: 047
  2. TIMOLOL MALEATE [Concomitant]
  3. METHOTREXATE [Concomitant]

REACTIONS (2)
  - INTRAOCULAR PRESSURE INCREASED [None]
  - DRUG INEFFECTIVE [None]
